FAERS Safety Report 6518246-5 (Version None)
Quarter: 2009Q4

REPORT INFORMATION
  Report Type: 
  Country: None (occurrence: None)
  Receive Date: 20091223
  Receipt Date: 20091223
  Transmission Date: 20100525
  Serious: Yes (Disabling, Other)
  Sender: FDA-Public Use
  Company Number: None

PATIENT
  Sex: Female

DRUGS (1)
  1. REGLAN [Suspect]
     Indication: NAUSEA
     Dosage: ONE TABLET 3 TIMES DAILY PO
     Route: 048
     Dates: start: 20090721, end: 20091030

REACTIONS (8)
  - ANXIETY [None]
  - CLAUSTROPHOBIA [None]
  - DIZZINESS [None]
  - DYSKINESIA [None]
  - FATIGUE [None]
  - HEADACHE [None]
  - INSOMNIA [None]
  - RESTLESSNESS [None]
